FAERS Safety Report 16193551 (Version 1)
Quarter: 2019Q2

REPORT INFORMATION
  Report Type: Spontaneous
  Country: CA (occurrence: CA)
  Receive Date: 20190413
  Receipt Date: 20190413
  Transmission Date: 20190711
  Serious: Yes (Other)
  Sender: FDA-Public Use
  Company Number: CA-TEVA-2019-CA-1037339

PATIENT
  Age: 47 Year
  Sex: Female

DRUGS (9)
  1. XELJANZ [Concomitant]
     Active Substance: TOFACITINIB CITRATE
     Indication: RHEUMATOID ARTHRITIS
     Dosage: 10 MILLIGRAM DAILY;
     Route: 048
  2. KETOROLAC [Concomitant]
     Active Substance: KETOROLAC\KETOROLAC TROMETHAMINE
  3. ASA [Concomitant]
     Active Substance: ASPIRIN
     Indication: CARDIAC DISORDER
  4. HUMIRA [Concomitant]
     Active Substance: ADALIMUMAB
     Dosage: SOLUTION SUBCUTANEOUS
     Route: 058
  5. ACETAMINOPHEN/CAFFEINE/CODEINE PHOSPHATE [Concomitant]
     Active Substance: ACETAMINOPHEN\CAFFEINE\CODEINE PHOSPHATE
     Route: 065
  6. METHOTREXATE. [Suspect]
     Active Substance: METHOTREXATE
     Indication: RHEUMATOID ARTHRITIS
     Route: 058
  7. ACETAMINOPHEN/CAFFEINE/CODEINE PHOSPHATE [Concomitant]
     Active Substance: ACETAMINOPHEN\CAFFEINE\CODEINE PHOSPHATE
     Route: 065
  8. FOLIC ACID. [Concomitant]
     Active Substance: FOLIC ACID
     Dosage: 5 MILLIGRAM DAILY;
  9. HYDROXYCHLOROQUINE SULFATE. [Concomitant]
     Active Substance: HYDROXYCHLOROQUINE SULFATE
     Indication: RHEUMATOID ARTHRITIS
     Dosage: 400 MILLIGRAM DAILY;

REACTIONS (4)
  - Productive cough [Not Recovered/Not Resolved]
  - Bronchitis [Not Recovered/Not Resolved]
  - Drug ineffective [Not Recovered/Not Resolved]
  - Sputum purulent [Not Recovered/Not Resolved]
